FAERS Safety Report 24651655 (Version 5)
Quarter: 2024Q4

REPORT INFORMATION
  Report Type: Spontaneous
  Country: JP (occurrence: JP)
  Receive Date: 20241122
  Receipt Date: 20241228
  Transmission Date: 20250115
  Serious: Yes (Death, Hospitalization, Other)
  Sender: ROCHE
  Company Number: JP-CHUGAI-2024037093

PATIENT
  Age: 9 Decade
  Sex: Female

DRUGS (5)
  1. PIASKY [Suspect]
     Active Substance: CROVALIMAB-AKKZ
     Indication: Paroxysmal nocturnal haemoglobinuria
     Route: 058
     Dates: end: 20241105
  2. PIASKY [Suspect]
     Active Substance: CROVALIMAB-AKKZ
     Route: 058
     Dates: start: 20241007
  3. PIASKY [Suspect]
     Active Substance: CROVALIMAB-AKKZ
     Dosage: 340 MILLIGRAM, ONCE/WEEK, START DATE: 07-OCT-2024
     Route: 050
  4. VOYDEYA [Suspect]
     Active Substance: DANICOPAN
     Indication: Paroxysmal nocturnal haemoglobinuria
     Route: 065
  5. LETROZOLE [Concomitant]
     Active Substance: LETROZOLE
     Indication: Breast cancer
     Route: 048

REACTIONS (13)
  - Headache [Recovered/Resolved]
  - Ear pain [Recovering/Resolving]
  - Pyrexia [Recovered/Resolved]
  - Interstitial lung disease [Fatal]
  - Type III immune complex mediated reaction [Recovered/Resolved]
  - Haemoglobin decreased [Not Recovered/Not Resolved]
  - Myalgia [Unknown]
  - Arthralgia [Unknown]
  - Refusal of treatment by patient [Unknown]
  - Neck pain [Recovered/Resolved]
  - Infection [Unknown]
  - Pyrexia [Recovered/Resolved]
  - Cardiac failure [Unknown]

NARRATIVE: CASE EVENT DATE: 20241017
